FAERS Safety Report 13432897 (Version 8)
Quarter: 2019Q1

REPORT INFORMATION
  Report Type: Spontaneous
  Country: JP (occurrence: JP)
  Receive Date: 20170412
  Receipt Date: 20190311
  Transmission Date: 20190417
  Serious: Yes (Death, Other)
  Sender: FDA-Public Use
  Company Number: JP-ABBVIE-17P-087-1937200-00

PATIENT
  Age: 56 Year
  Sex: Male
  Weight: 81.2 kg

DRUGS (7)
  1. HUMIRA [Suspect]
     Active Substance: ADALIMUMAB
     Indication: RHEUMATOID VASCULITIS
     Route: 058
     Dates: start: 201205, end: 201508
  2. PREDNISOLONE. [Concomitant]
     Active Substance: PREDNISOLONE
     Indication: INTERSTITIAL LUNG DISEASE
     Route: 048
     Dates: start: 20111213, end: 20160407
  3. PREDNISOLONE. [Concomitant]
     Active Substance: PREDNISOLONE
     Indication: RHEUMATOID ARTHRITIS
     Dates: start: 20160408, end: 20160416
  4. CICLOSPORIN [Concomitant]
     Active Substance: CYCLOSPORINE
     Indication: RHEUMATOID ARTHRITIS
  5. ATORVASTATIN CALCIUM HYDRATE [Concomitant]
     Active Substance: ATORVASTATIN CALCIUM
     Indication: PRODUCT USED FOR UNKNOWN INDICATION
     Route: 048
     Dates: start: 20111213
  6. CICLOSPORIN [Concomitant]
     Active Substance: CYCLOSPORINE
     Indication: INTERSTITIAL LUNG DISEASE
     Route: 048
     Dates: start: 20111213
  7. HUMIRA [Suspect]
     Active Substance: ADALIMUMAB
     Route: 058
     Dates: start: 20150811, end: 20160412

REACTIONS (8)
  - Inappropriate schedule of product administration [Unknown]
  - Dyspnoea exertional [Unknown]
  - Hypertension [Recovering/Resolving]
  - Cough [Unknown]
  - Sensory disturbance [Unknown]
  - Cerebral infarction [Unknown]
  - Pulmonary hypertension [Fatal]
  - Rheumatoid vasculitis [Fatal]

NARRATIVE: CASE EVENT DATE: 2013
